FAERS Safety Report 17429274 (Version 1)
Quarter: 2020Q1

REPORT INFORMATION
  Report Type: Spontaneous
  Country: US (occurrence: US)
  Receive Date: 20200131
  Receipt Date: 20200131
  Transmission Date: 20200409
  Serious: Yes (Hospitalization)
  Sender: FDA-Public Use
  Company Number: None

PATIENT
  Age: 77 Year
  Sex: Female
  Weight: 72.57 kg

DRUGS (8)
  1. GLIPIZIDE. [Concomitant]
     Active Substance: GLIPIZIDE
  2. METHOCARBAMOL 750MG TABLETS [Suspect]
     Active Substance: METHOCARBAMOL
     Dosage: ?          QUANTITY:1 DF DOSAGE FORM;?
     Route: 048
  3. ENALAPRIL-HCTZ [Concomitant]
  4. ONE A DAY WOMEN MULTIVITAMIN/MULTIMINERAL SUPPLEMENT [Concomitant]
  5. CELEBREX [Suspect]
     Active Substance: CELECOXIB
  6. JANUMET [Concomitant]
     Active Substance: METFORMIN HYDROCHLORIDE\SITAGLIPTIN PHOSPHATE
  7. NAPROXEN 500MG TABLETS [Suspect]
     Active Substance: NAPROXEN
     Indication: MUSCULOSKELETAL PAIN
     Dosage: ?          QUANTITY:1 DF DOSAGE FORM;?
     Route: 048
     Dates: start: 20191130, end: 20191204
  8. EQUATE 8 HR ARTHRITIS PAIN RELIEF [Concomitant]

REACTIONS (2)
  - Drug hypersensitivity [None]
  - Treatment noncompliance [None]

NARRATIVE: CASE EVENT DATE: 20191129
